FAERS Safety Report 7129412-2 (Version None)
Quarter: 2010Q4

REPORT INFORMATION
  Report Type: 
  Country: None (occurrence: None)
  Receive Date: 20101130
  Receipt Date: 20100607
  Transmission Date: 20110411
  Serious: Yes (Death, Hospitalization)
  Sender: FDA-Public Use
  Company Number: US-JNJFOC-20101107054

PATIENT
  Age: 31 Year
  Sex: Female
  Weight: 28.35 kg

DRUGS (3)
  1. CHILDREN'S TYLENOL SUSPENSION [Suspect]
  2. CHILDREN'S TYLENOL SUSPENSION [Suspect]
     Indication: PYREXIA
     Dosage: 320-480MG AS NEEDED
  3. SEIZURE MEDICATIONS [Concomitant]
     Indication: CONVULSION

REACTIONS (4)
  - DEATH [None]
  - DRUG INEFFECTIVE [None]
  - PNEUMONIA ASPIRATION [None]
  - PRODUCT QUALITY ISSUE [None]
